FAERS Safety Report 16776090 (Version 2)
Quarter: 2019Q3

REPORT INFORMATION
  Report Type: Spontaneous
  Country: US (occurrence: US)
  Receive Date: 20190905
  Receipt Date: 20190923
  Transmission Date: 20191005
  Serious: Yes (Death, Life-Threatening, Other)
  Sender: FDA-Public Use
  Company Number: US-PFIZER INC-2019384642

PATIENT
  Age: 17 Year
  Sex: Female

DRUGS (12)
  1. DEXAMETHASONE. [Suspect]
     Active Substance: DEXAMETHASONE
     Indication: HYPERTHYROIDISM
     Dosage: 2 MG, 4X/DAY (2MG EVERY 6 H IV)
     Route: 042
     Dates: start: 2010
  2. OMEPRAZOLE. [Concomitant]
     Active Substance: OMEPRAZOLE
     Dosage: UNK
  3. PROPYLTHIOURACIL. [Suspect]
     Active Substance: PROPYLTHIOURACIL
     Indication: HYPERTHYROIDISM
     Dosage: 300 MG, 4X/DAY
     Route: 048
     Dates: start: 2010, end: 2010
  4. LEVOTHYROXINE. [Concomitant]
     Active Substance: LEVOTHYROXINE
     Indication: HYPOTHYROIDISM
     Dosage: 50 UG, DAILY
     Dates: start: 2010
  5. SILDENAFIL. [Concomitant]
     Active Substance: SILDENAFIL
     Dosage: UNK
  6. ESMOLOL [Suspect]
     Active Substance: ESMOLOL HYDROCHLORIDE
     Indication: HYPERTHYROIDISM
     Dosage: UNK (CONTINUOUS ESMOLOL INFUSION)
     Dates: start: 2010
  7. ONDANSETRON [Concomitant]
     Active Substance: ONDANSETRON
     Dosage: UNK
  8. EPOPROSTENOL. [Concomitant]
     Active Substance: EPOPROSTENOL
     Indication: PULMONARY ARTERIAL HYPERTENSION
     Dosage: UNK
     Route: 042
  9. POTASSIUM IODIDE. [Suspect]
     Active Substance: POTASSIUM IODIDE
     Indication: HYPERTHYROIDISM
     Dosage: 150 MG, 3X/DAY (SATURATED SOLUTION, SSKI, DISCONTINUED ON HOSPITAL D 12)
     Route: 048
     Dates: start: 2010, end: 2010
  10. WARFARIN [Concomitant]
     Active Substance: WARFARIN
     Dosage: UNK
  11. DIGOXIN. [Concomitant]
     Active Substance: DIGOXIN
     Dosage: UNK
  12. METHIMAZOLE. [Suspect]
     Active Substance: METHIMAZOLE
     Indication: HYPERTHYROIDISM
     Dosage: UNK
     Dates: start: 2010

REACTIONS (9)
  - Cardio-respiratory arrest [Fatal]
  - Drug ineffective [Unknown]
  - Hypotension [Unknown]
  - Renal failure [Unknown]
  - Pulmonary haemorrhage [Unknown]
  - Hypoxia [Unknown]
  - Cardiopulmonary failure [Fatal]
  - Thrombocytopenia [Unknown]
  - Troponin increased [Unknown]

NARRATIVE: CASE EVENT DATE: 2010
